FAERS Safety Report 16482223 (Version 7)
Quarter: 2019Q4

REPORT INFORMATION
  Report Type: Spontaneous
  Country: US (occurrence: US)
  Receive Date: 20190627
  Receipt Date: 20191029
  Transmission Date: 20200122
  Serious: Yes (Other)
  Sender: FDA-Public Use
  Company Number: US-PFIZER INC-2019273660

PATIENT
  Age: 68 Year
  Sex: Female
  Weight: 65.76 kg

DRUGS (4)
  1. BOTOX [Concomitant]
     Active Substance: ONABOTULINUMTOXINA
     Indication: TREMOR
     Dosage: UNK
  2. IBRANCE [Suspect]
     Active Substance: PALBOCICLIB
     Dosage: UNK, CYCLIC
  3. LETROZOLE. [Concomitant]
     Active Substance: LETROZOLE
     Indication: NEOPLASM MALIGNANT
     Dosage: UNK
  4. IBRANCE [Suspect]
     Active Substance: PALBOCICLIB
     Indication: BREAST CANCER METASTATIC
     Dosage: 125 MG, CYCLIC (ONE PER DAY BY MOUTH FOR 3 WEEKS)
     Route: 048
     Dates: start: 201810

REACTIONS (12)
  - Poor quality product administered [Unknown]
  - Tumour marker increased [Unknown]
  - Muscle spasms [Unknown]
  - Mental impairment [Unknown]
  - Pain [Unknown]
  - Pyloric stenosis [Unknown]
  - Product storage error [Unknown]
  - Constipation [Unknown]
  - Fatigue [Unknown]
  - Neoplasm progression [Unknown]
  - Asthenia [Unknown]
  - Diarrhoea [Unknown]
